FAERS Safety Report 16391716 (Version 1)
Quarter: 2019Q2

REPORT INFORMATION
  Report Type: Spontaneous
  Country: US (occurrence: US)
  Receive Date: 20190605
  Receipt Date: 20190605
  Transmission Date: 20190711
  Serious: No
  Sender: FDA-Public Use
  Company Number: US-APOTEX-2018AP026756

PATIENT
  Age: 54 Year
  Sex: Female

DRUGS (2)
  1. AZELASTINE HYDROCHLORIDE NASAL SOLUTION (NASAL SPRAY) [Suspect]
     Active Substance: AZELASTINE HYDROCHLORIDE
     Indication: DYSPNOEA
     Dosage: 1 SPRAY EACH NOSTRIL, BID
     Route: 050
     Dates: start: 20181115, end: 20181121
  2. NASACORT [Concomitant]
     Active Substance: TRIAMCINOLONE ACETONIDE
     Indication: PRODUCT USED FOR UNKNOWN INDICATION
     Dosage: UNK, QD
     Route: 065

REACTIONS (6)
  - Exercise tolerance decreased [Unknown]
  - Chest discomfort [Recovered/Resolved]
  - Heart rate increased [Not Recovered/Not Resolved]
  - Dyspnoea [Recovered/Resolved]
  - Heart rate irregular [Unknown]
  - Condition aggravated [Recovered/Resolved]

NARRATIVE: CASE EVENT DATE: 201811
